FAERS Safety Report 19707289 (Version 1)
Quarter: 2021Q3

REPORT INFORMATION
  Report Type: Spontaneous
  Country: US (occurrence: US)
  Receive Date: 20210817
  Receipt Date: 20210817
  Transmission Date: 20211014
  Serious: No
  Sender: FDA-Public Use
  Company Number: US-CELGENEUS-USA-20210801979

PATIENT
  Sex: Female
  Weight: 49.94 kg

DRUGS (3)
  1. REVLIMID [Suspect]
     Active Substance: LENALIDOMIDE
     Indication: MYELODYSPLASTIC SYNDROME
     Dosage: 10 MILLIGRAM
     Route: 048
     Dates: start: 202107
  2. PROCRIT [Concomitant]
     Active Substance: ERYTHROPOIETIN
     Indication: PRODUCT USED FOR UNKNOWN INDICATION
     Route: 065
  3. RETACRIT [Concomitant]
     Active Substance: EPOETIN ALFA-EPBX
     Indication: PRODUCT USED FOR UNKNOWN INDICATION
     Route: 065

REACTIONS (10)
  - Peripheral swelling [Unknown]
  - Hypersomnia [Unknown]
  - Decreased appetite [Unknown]
  - Pruritus [Unknown]
  - Bone marrow disorder [Unknown]
  - Fatigue [Unknown]
  - Sleep disorder [Unknown]
  - Dyspnoea [Unknown]
  - Asthenia [Unknown]
  - Chest pain [Unknown]

NARRATIVE: CASE EVENT DATE: 2021
